FAERS Safety Report 8365122-1 (Version None)
Quarter: 2012Q2

REPORT INFORMATION
  Report Type: 
  Country: None (occurrence: None)
  Receive Date: 20120516
  Receipt Date: 20120427
  Transmission Date: 20120825
  Serious: No
  Sender: FDA-Public Use
  Company Number: US-ASTRAZENECA-2012SE27730

PATIENT

DRUGS (12)
  1. AZATHIOPRINE [Concomitant]
  2. FLONASE [Concomitant]
     Indication: RHINITIS ALLERGIC
     Dosage: 50MCG/ACTUATION SPRAY SUSPENSION, TWO SPRAY ONCE A DAY
     Route: 045
  3. HYDROCODONE BITARTRATE + ACETAMINOPHEN [Concomitant]
     Dosage: 5-325 MG TABLET AT EVERY 8 HOURS
  4. LEXAPRO [Concomitant]
     Indication: DEPRESSION
  5. PREMARIN [Concomitant]
  6. FLUCONAZOLE [Concomitant]
  7. LASOPRAZOLE [Concomitant]
     Indication: CROHN'S DISEASE
  8. CLONAZEPAM [Concomitant]
     Indication: ANXIETY
  9. HYOSCYAMINE SULFATE [Concomitant]
  10. NEXIUM [Suspect]
     Route: 048
  11. CITALOPRAM HYDROBROMIDE [Concomitant]
     Indication: DEPRESSION
  12. CRESTOR [Suspect]
     Indication: HYPERLIPIDAEMIA
     Route: 048

REACTIONS (9)
  - OTITIS EXTERNA [None]
  - DRUG HYPERSENSITIVITY [None]
  - DEPRESSION [None]
  - RHINITIS ALLERGIC [None]
  - ANXIETY [None]
  - CROHN'S DISEASE [None]
  - MENOPAUSAL DISORDER [None]
  - HYPERLIPIDAEMIA [None]
  - GASTROINTESTINAL INFLAMMATION [None]
